FAERS Safety Report 7475001-X (Version None)
Quarter: 2011Q2

REPORT INFORMATION
  Report Type: 
  Country: None (occurrence: None)
  Receive Date: 20110509
  Receipt Date: 20110509
  Transmission Date: 20111010
  Serious: No
  Sender: FDA-Public Use
  Company Number: None

PATIENT
  Age: 75 Year
  Sex: Female
  Weight: 67.586 kg

DRUGS (2)
  1. AZITHROMYCIN [Suspect]
     Indication: BRONCHITIS
     Dosage: 2 TABLETS ONCE 1 TABLET DAILY FOR 5 DAYS
     Dates: start: 20110423, end: 20110428
  2. AZITHROMYCIN [Suspect]
     Indication: PHARYNGITIS STREPTOCOCCAL
     Dosage: 2 TABLETS ONCE 1 TABLET DAILY FOR 5 DAYS
     Dates: start: 20110423, end: 20110428

REACTIONS (2)
  - HEARING IMPAIRED [None]
  - EAR DISCOMFORT [None]
